FAERS Safety Report 6872091-X (Version None)
Quarter: 2010Q3

REPORT INFORMATION
  Report Type: 
  Country: None (occurrence: None)
  Receive Date: 20100723
  Receipt Date: 20100713
  Transmission Date: 20110219
  Serious: Yes (Other)
  Sender: FDA-Public Use
  Company Number: NL-PFIZER INC-2010083274

PATIENT
  Age: 75 Year
  Sex: Female
  Weight: 80 kg

DRUGS (3)
  1. NEURONTIN [Suspect]
     Dosage: 300 MG, 2X/DAY
     Dates: start: 20100301
  2. ACENOCOUMAROL [Interacting]
     Dosage: UNK
  3. PERINDOPRIL [Concomitant]
     Indication: HYPERTENSION
     Dosage: 2 MG, 1X/DAY
     Dates: start: 20081014

REACTIONS (3)
  - COAGULOPATHY [None]
  - DRUG INTERACTION [None]
  - INTERNATIONAL NORMALISED RATIO ABNORMAL [None]
